FAERS Safety Report 13982816 (Version 2)
Quarter: 2017Q4

REPORT INFORMATION
  Report Type: Spontaneous
  Country: DE (occurrence: DE)
  Receive Date: 20170918
  Receipt Date: 20171114
  Transmission Date: 20180321
  Serious: Yes (Life-Threatening, Other)
  Sender: FDA-Public Use
  Company Number: DE-GLAXOSMITHKLINE-DE2017GSK141120

PATIENT
  Age: 63 Year
  Sex: Female
  Weight: 85 kg

DRUGS (4)
  1. QUENSYL [Concomitant]
     Active Substance: HYDROXYCHLOROQUINE
     Indication: SYSTEMIC LUPUS ERYTHEMATOSUS
     Dosage: UNK UNK, U
     Route: 048
     Dates: start: 2008, end: 2012
  2. BENLYSTA [Suspect]
     Active Substance: BELIMUMAB
     Indication: SYSTEMIC LUPUS ERYTHEMATOSUS
     Dosage: 800 MG, CYC
     Route: 042
     Dates: start: 201311, end: 201604
  3. PREDNISOLON [Concomitant]
     Active Substance: PREDNISOLONE
     Indication: SYSTEMIC LUPUS ERYTHEMATOSUS
     Dosage: UNK UNK, U, 8-15 MG DAILY
  4. AZATHIOPRINE. [Concomitant]
     Active Substance: AZATHIOPRINE
     Indication: SYSTEMIC LUPUS ERYTHEMATOSUS
     Dosage: UNK UNK, U
     Dates: start: 201304, end: 201305

REACTIONS (1)
  - Malignant melanoma [Unknown]

NARRATIVE: CASE EVENT DATE: 201606
